FAERS Safety Report 15854616 (Version 2)
Quarter: 2019Q1

REPORT INFORMATION
  Report Type: Report from Study
  Country: None (occurrence: US)
  Receive Date: 20190122
  Receipt Date: 20190213
  Transmission Date: 20190417
  Serious: Yes (Hospitalization)
  Sender: FDA-Public Use
  Company Number: US-ABBVIE-19K-163-2630238-00

PATIENT
  Sex: Male

DRUGS (2)
  1. HUMIRA [Suspect]
     Active Substance: ADALIMUMAB
     Indication: RHEUMATOID ARTHRITIS
     Route: 058
     Dates: start: 20181028, end: 20190107
  2. HUMIRA [Suspect]
     Active Substance: ADALIMUMAB
     Route: 058
     Dates: start: 2019

REACTIONS (9)
  - Blood glucose increased [Unknown]
  - Pulmonary mass [Unknown]
  - Vertigo [Unknown]
  - Thrombosis [Unknown]
  - Peripheral swelling [Unknown]
  - Blood disorder [Unknown]
  - Pulmonary thrombosis [Unknown]
  - Cardiolipin antibody positive [Unknown]
  - Weight increased [Unknown]

NARRATIVE: CASE EVENT DATE: 2019
